FAERS Safety Report 24137944 (Version 1)
Quarter: 2024Q3

REPORT INFORMATION
  Report Type: Spontaneous
  Country: FR (occurrence: FR)
  Receive Date: 20240725
  Receipt Date: 20240725
  Transmission Date: 20241017
  Serious: Yes (Hospitalization)
  Sender: CHEMISCHE FABRIK KREUSSLER
  Company Number: FR-CHEMISCHE FABRIK KREUSSLER-ae008FR24

PATIENT
  Age: 44 Year
  Sex: Female

DRUGS (3)
  1. AETOXISCLEROL [Suspect]
     Active Substance: POLIDOCANOL
     Indication: Varicose vein
     Dosage: FIRST SCLEROTHERAPY SESSION
     Route: 042
     Dates: start: 20240325, end: 20240325
  2. PAROXETINE [Concomitant]
     Active Substance: PAROXETINE
     Indication: Attention deficit hyperactivity disorder
     Dosage: EVERY 2 DAY
  3. AntiGone 75 microgrammes [Concomitant]
     Indication: Product used for unknown indication

REACTIONS (1)
  - Guillain-Barre syndrome [Recovering/Resolving]

NARRATIVE: CASE EVENT DATE: 20240402
